FAERS Safety Report 17893466 (Version 1)
Quarter: 2020Q2

REPORT INFORMATION
  Report Type: Other
  Country: GR (occurrence: GR)
  Receive Date: 20200615
  Receipt Date: 20200615
  Transmission Date: 20200714
  Serious: Yes (Hospitalization)
  Sender: FDA-Public Use
  Company Number: GR-NUVO PHARMACEUTICALS INC-2085799

PATIENT
  Age: 32 Year
  Sex: Female

DRUGS (1)
  1. POLYETHYLENE GLYCOL 3350. [Suspect]
     Active Substance: POLYETHYLENE GLYCOL 3350
     Indication: CONSTIPATION
     Route: 048

REACTIONS (1)
  - Anaphylactic reaction [Recovered/Resolved]
